FAERS Safety Report 9712763 (Version 3)
Quarter: 2014Q1

REPORT INFORMATION
  Report Type: Spontaneous
  Country: None (occurrence: US)
  Receive Date: 20131126
  Receipt Date: 20140305
  Transmission Date: 20141002
  Serious: No
  Sender: FDA-Public Use
  Company Number: US-TEVA-446292USA

PATIENT
  Sex: Female
  Weight: 71.28 kg

DRUGS (3)
  1. QNASL [Suspect]
     Indication: HYPERSENSITIVITY
     Dates: start: 201206, end: 201206
  2. ALLEGRA [Concomitant]
     Indication: ANTIALLERGIC THERAPY
  3. CLARITIN [Concomitant]
     Indication: ANTIALLERGIC THERAPY

REACTIONS (2)
  - Headache [Recovered/Resolved]
  - Nasal congestion [Unknown]
